FAERS Safety Report 6864404-X (Version None)
Quarter: 2010Q3

REPORT INFORMATION
  Report Type: 
  Country: None (occurrence: None)
  Receive Date: 20100721
  Receipt Date: 20080425
  Transmission Date: 20110219
  Serious: No
  Sender: FDA-Public Use
  Company Number: US-PFIZER INC-2008026668

PATIENT
  Sex: Female
  Weight: 75 kg

DRUGS (7)
  1. CHANTIX [Suspect]
     Indication: SMOKING CESSATION THERAPY
     Dates: start: 20080201
  2. MELOXICAM [Concomitant]
  3. BENICAR HCT [Concomitant]
  4. AMLODIPINE [Concomitant]
  5. POTASSIUM CHLORIDE [Concomitant]
  6. ACETYLSALICYLIC ACID [Concomitant]
  7. CALCIUM [Concomitant]

REACTIONS (4)
  - CHEST PAIN [None]
  - CRYING [None]
  - NERVOUSNESS [None]
  - TREMOR [None]
